FAERS Safety Report 16840208 (Version 1)
Quarter: 2019Q3

REPORT INFORMATION
  Report Type: Spontaneous
  Country: US (occurrence: US)
  Receive Date: 20190801
  Receipt Date: 20190801
  Transmission Date: 20191005
  Serious: No
  Sender: FDA-Public Use
  Company Number: None

PATIENT
  Age: 66 Year
  Sex: Male
  Weight: 83.91 kg

DRUGS (6)
  1. VITAMIN B COMPLEX [Concomitant]
     Active Substance: CYANOCOBALAMIN\DEXPANTHENOL\NIACINAMIDE\PYRIDOXINE HYDROCHLORIDE\RIBOFLAVIN 5^-PHOSPHATE SODIUM\THIAMINE HYDROCHLORIDE\VITAMIN B COMPLEX
  2. VITAMIN C [Concomitant]
     Active Substance: ASCORBIC ACID
  3. L-TYROSINE [Concomitant]
     Active Substance: TYROSINE
  4. LATANOPROST. [Suspect]
     Active Substance: LATANOPROST
     Indication: OCULAR DISCOMFORT
     Dosage: ?          OTHER STRENGTH:50MCG/ML;QUANTITY:1DROP EA EYE HS;?
     Route: 047
     Dates: start: 20190513, end: 20190531
  5. MAGNESIUM [Concomitant]
     Active Substance: MAGNESIUM
  6. R LIPOIC ACID [Concomitant]

REACTIONS (3)
  - Disorientation [None]
  - Dizziness [None]
  - Vertigo [None]

NARRATIVE: CASE EVENT DATE: 20190527
